FAERS Safety Report 21941556 (Version 1)
Quarter: 2023Q1

REPORT INFORMATION
  Report Type: Report from Study
  Country: US (occurrence: US)
  Receive Date: 20230202
  Receipt Date: 20230202
  Transmission Date: 20230418
  Serious: No
  Sender: FDA-Public Use
  Company Number: US-EXELIXIS-CABO-22054716

PATIENT
  Sex: Male

DRUGS (10)
  1. CABOMETYX [Suspect]
     Active Substance: CABOZANTINIB S-MALATE
     Indication: Renal cell carcinoma
     Dosage: 40 MG, QD
     Dates: start: 202207
  2. CABOMETYX [Suspect]
     Active Substance: CABOZANTINIB S-MALATE
     Dosage: 40 MG, QD
  3. CRESTOR [Concomitant]
     Active Substance: ROSUVASTATIN CALCIUM
  4. SILDENAFIL [Concomitant]
     Active Substance: SILDENAFIL
  5. FLOMAX [Concomitant]
     Active Substance: TAMSULOSIN HYDROCHLORIDE
  6. VENTOLIN HFA [Concomitant]
     Active Substance: ALBUTEROL SULFATE
  7. ZOLPIDEM [Concomitant]
     Active Substance: ZOLPIDEM TARTRATE
  8. GABAPENTIN [Concomitant]
     Active Substance: GABAPENTIN
  9. AMBIEN [Concomitant]
     Active Substance: ZOLPIDEM TARTRATE
  10. INSULIN NOS [Concomitant]
     Active Substance: INSULIN NOS

REACTIONS (6)
  - Taste disorder [Unknown]
  - Stomatitis [Not Recovered/Not Resolved]
  - Dysphonia [Unknown]
  - Pain in extremity [Not Recovered/Not Resolved]
  - Fatigue [Unknown]
  - Product dose omission issue [Unknown]
